FAERS Safety Report 9336280 (Version 1)
Quarter: 2013Q2

REPORT INFORMATION
  Report Type: Report from Study
  Country: US (occurrence: US)
  Receive Date: 20130607
  Receipt Date: 20130607
  Transmission Date: 20140414
  Serious: No
  Sender: FDA-Public Use
  Company Number: US-009507513-1305USA014036

PATIENT
  Age: 21 Year
  Sex: 0
  Weight: 46.71 kg

DRUGS (1)
  1. IMPLANON [Suspect]
     Dosage: UNK
     Route: 059
     Dates: start: 20100503, end: 20130523

REACTIONS (2)
  - Incorrect drug administration duration [Unknown]
  - Medical device removal [Unknown]
